FAERS Safety Report 14627248 (Version 3)
Quarter: 2019Q1

REPORT INFORMATION
  Report Type: Report from Study
  Country: US (occurrence: US)
  Receive Date: 20180312
  Receipt Date: 20190226
  Transmission Date: 20190417
  Serious: Yes (Death)
  Sender: FDA-Public Use
  Company Number: US-PFIZER INC-2018096406

PATIENT
  Age: 73 Year
  Sex: Female

DRUGS (7)
  1. RITUXIMAB. [Suspect]
     Active Substance: RITUXIMAB
     Indication: DOUBLE HIT LYMPHOMA
     Dosage: UNK, CYCLIC (1 CYCLE)
  2. DOXORUBICIN HCL [Suspect]
     Active Substance: DOXORUBICIN HYDROCHLORIDE
     Indication: DOUBLE HIT LYMPHOMA
     Dosage: UNK, CYCLIC (1 CYCLE)
  3. VINCRISTINE SULFATE. [Suspect]
     Active Substance: VINCRISTINE SULFATE
     Indication: DOUBLE HIT LYMPHOMA
     Dosage: UNK, CYCLIC (1 CYCLE)
  4. ETOPOSIDE. [Suspect]
     Active Substance: ETOPOSIDE
     Indication: DOUBLE HIT LYMPHOMA
     Dosage: UNK, CYCLIC (1 CYCLE)
  5. METHOTREXATE SODIUM. [Suspect]
     Active Substance: METHOTREXATE SODIUM
     Indication: PROPHYLAXIS
     Dosage: UNK, CYCLIC
     Route: 037
  6. CYCLOPHOSPHAMIDE. [Suspect]
     Active Substance: CYCLOPHOSPHAMIDE
     Indication: DOUBLE HIT LYMPHOMA
     Dosage: UNK, CYCLIC (1 CYCLE)
  7. PREDNISOLONE. [Suspect]
     Active Substance: PREDNISOLONE
     Indication: DOUBLE HIT LYMPHOMA
     Dosage: UNK, CYCLIC (1 CYCLE)

REACTIONS (2)
  - Enterococcal sepsis [Fatal]
  - Enterococcal infection [Fatal]
